FAERS Safety Report 5146231-7 (Version None)
Quarter: 2006Q4

REPORT INFORMATION
  Report Type: 
  Country: None (occurrence: None)
  Receive Date: 20061106
  Receipt Date: 20061106
  Transmission Date: 20070319
  Serious: Yes (Hospitalization)
  Sender: FDA-Public Use
  Company Number: None

PATIENT
  Sex: Male
  Weight: 70 kg

DRUGS (12)
  1. GEMCITABINE HCL [Suspect]
     Dosage: 3630 MG
  2. TAXOL [Suspect]
     Dosage: 158  MG
  3. CISPLATIN [Suspect]
     Dosage: 64 MG
  4. ASPIRIN [Concomitant]
  5. ATENOLOL [Concomitant]
  6. ATORVASTATIN CALCIUM [Concomitant]
  7. CARDIAC STUDY DRUG (PL.ACEBO VS. RANOLAZINE) [Concomitant]
  8. ESOMEPRAZOLE MAGNESIUM [Concomitant]
  9. ASPIRIN [Concomitant]
  10. LIPITOR [Concomitant]
  11. NITROGLYCERIN [Concomitant]
  12. NEXIUM [Concomitant]

REACTIONS (15)
  - ASTHENIA [None]
  - BLOOD CREATININE INCREASED [None]
  - CANDIDIASIS [None]
  - CHILLS [None]
  - FATIGUE [None]
  - FEBRILE NEUTROPENIA [None]
  - FLUSHING [None]
  - HYPERSOMNIA [None]
  - MALAISE [None]
  - OXYGEN SATURATION DECREASED [None]
  - PHARYNGOLARYNGEAL PAIN [None]
  - PLATELET COUNT DECREASED [None]
  - TACHYCARDIA [None]
  - URTICARIA [None]
  - WHITE BLOOD CELL COUNT ABNORMAL [None]
